FAERS Safety Report 5142229-3 (Version None)
Quarter: 2006Q4

REPORT INFORMATION
  Report Type: 
  Country: None (occurrence: None)
  Receive Date: 20061102
  Receipt Date: 20061023
  Transmission Date: 20070319
  Serious: Yes (Other)
  Sender: FDA-Public Use
  Company Number: US-GLAXOSMITHKLINE-A0624518A

PATIENT
  Age: 24 Year
  Sex: Male

DRUGS (1)
  1. DEBROX DROPS [Suspect]
     Route: 001

REACTIONS (2)
  - CERUMEN IMPACTION [None]
  - DEAFNESS UNILATERAL [None]
